FAERS Safety Report 13058729 (Version 1)
Quarter: 2016Q4

REPORT INFORMATION
  Report Type: Spontaneous
  Country: US (occurrence: US)
  Receive Date: 20161223
  Receipt Date: 20161223
  Transmission Date: 20170207
  Serious: No
  Sender: FDA-Public Use
  Company Number: US-BAUSCH-BL-2016-002264

PATIENT
  Age: 43 Year
  Sex: Female

DRUGS (4)
  1. XENAZINE [Suspect]
     Active Substance: TETRABENAZINE
     Dosage: ON SECOND WEEK
     Route: 048
     Dates: start: 201512
  2. XENAZINE [Suspect]
     Active Substance: TETRABENAZINE
     Indication: STEREOTYPY
     Route: 048
     Dates: start: 20151218, end: 2016
  3. XENAZINE [Suspect]
     Active Substance: TETRABENAZINE
     Dosage: 25 MG IN THE MORNING AND 12.5 MG IN THE EVENING ON THIRD WEEK
     Route: 048
     Dates: start: 201601
  4. XENAZINE [Suspect]
     Active Substance: TETRABENAZINE
     Dosage: IN FOURTH WEEK
     Route: 048
     Dates: start: 201601

REACTIONS (3)
  - Adverse event [Unknown]
  - Off label use [Recovered/Resolved]
  - Drooling [Not Recovered/Not Resolved]

NARRATIVE: CASE EVENT DATE: 201512
